FAERS Safety Report 10235076 (Version 1)
Quarter: 2014Q2

REPORT INFORMATION
  Report Type: Spontaneous
  Country: US (occurrence: None)
  Receive Date: 20140611
  Receipt Date: 20140611
  Transmission Date: 20141212
  Serious: Yes (Hospitalization)
  Sender: FDA-Public Use
  Company Number: 2379008

PATIENT
  Age: 62 Year
  Sex: Male

DRUGS (5)
  1. (ASPIRIN) [Concomitant]
  2. (FUROSEMIDE) [Concomitant]
  3. (LISINOPRIL) [Concomitant]
  4. (METOPROLOL) [Concomitant]
  5. AMIODARONE [Suspect]
     Indication: ATRIAL FIBRILLATION

REACTIONS (1)
  - Myxoedema coma [None]
